FAERS Safety Report 15108087 (Version 1)
Quarter: 2018Q3

REPORT INFORMATION
  Report Type: Spontaneous
  Country: US (occurrence: US)
  Receive Date: 20180704
  Receipt Date: 20180704
  Transmission Date: 20181010
  Serious: No
  Sender: FDA-Public Use
  Company Number: US-TEVA-2018-US-920015

PATIENT
  Age: 41 Year
  Sex: Female

DRUGS (2)
  1. QVAR REDIHALER [Suspect]
     Active Substance: BECLOMETHASONE DIPROPIONATE
     Indication: BRONCHITIS
     Route: 065
     Dates: start: 20180628
  2. QVAR [Suspect]
     Active Substance: BECLOMETHASONE DIPROPIONATE
     Indication: BRONCHITIS
     Route: 065

REACTIONS (3)
  - Product use in unapproved indication [Unknown]
  - Drug dispensing error [Unknown]
  - Wrong technique in product usage process [Unknown]
